FAERS Safety Report 5892953-X (Version None)
Quarter: 2008Q3

REPORT INFORMATION
  Report Type: 
  Country: None (occurrence: None)
  Receive Date: 20080922
  Receipt Date: 20080922
  Transmission Date: 20090109
  Serious: Yes (Hospitalization)
  Sender: FDA-Public Use
  Company Number: None

PATIENT
  Age: 57 Year
  Sex: Female
  Weight: 64.7 kg

DRUGS (13)
  1. DASATINIB [Suspect]
     Indication: BREAST CANCER METASTATIC
     Dosage: 70 MG BID PO
     Route: 048
     Dates: start: 20080512, end: 20080903
  2. MVI CENTRUM SILVER [Concomitant]
  3. GLUCOSAMINE [Concomitant]
  4. CALCIUM GLUCONATE [Concomitant]
  5. MYCO SOFT GOLD MUSHROOM SUPPLEMENT [Concomitant]
  6. OXYCODONE HCL [Concomitant]
  7. OXYCONTIN [Concomitant]
  8. ZOFRAN [Concomitant]
  9. IBUPROFEN [Concomitant]
  10. OTC TUMS [Concomitant]
  11. PERI-COLACE [Concomitant]
  12. LASIX [Concomitant]
  13. XELODA [Concomitant]

REACTIONS (3)
  - CLOSTRIDIAL INFECTION [None]
  - COLITIS [None]
  - DISEASE PROGRESSION [None]
